FAERS Safety Report 4949273-7 (Version None)
Quarter: 2006Q1

REPORT INFORMATION
  Report Type: 
  Country: None (occurrence: None)
  Receive Date: 20060316
  Receipt Date: 20060302
  Transmission Date: 20060701
  Serious: Yes (Death, Other)
  Sender: FDA-Public Use
  Company Number: 2005162361

PATIENT
  Age: 43 Year
  Sex: Female
  Weight: 91.9895 kg

DRUGS (3)
  1. NEURONTIN [Suspect]
     Indication: PAIN
  2. PROPOXYPHENE HCL [Suspect]
     Indication: ILL-DEFINED DISORDER
  3. BUTALBITAL [Suspect]
     Indication: ILL-DEFINED DISORDER

REACTIONS (5)
  - CARDIO-RESPIRATORY ARREST [None]
  - COMPLETED SUICIDE [None]
  - DRUG INEFFECTIVE [None]
  - DRUG TOXICITY [None]
  - MULTIPLE DRUG OVERDOSE INTENTIONAL [None]
